FAERS Safety Report 4889870-0 (Version None)
Quarter: 2006Q1

REPORT INFORMATION
  Report Type: 
  Country: None (occurrence: None)
  Receive Date: 20060120
  Receipt Date: 20060111
  Transmission Date: 20060701
  Serious: No
  Sender: FDA-Public Use
  Company Number: 06H-163-0304377-00

PATIENT
  Sex: 0

DRUGS (2)
  1. STERILE VANCOMYCIN HCL (VANCOMYCIN HYDROCHLORIDE) (VANCOMYCIN HYDROCHL [Suspect]
  2. HEPARIN [Concomitant]

REACTIONS (3)
  - CATHETER SITE HAEMORRHAGE [None]
  - DRUG HYPERSENSITIVITY [None]
  - THROMBOCYTOPENIA [None]
